FAERS Safety Report 13740616 (Version 10)
Quarter: 2019Q1

REPORT INFORMATION
  Report Type: Spontaneous
  Country: GR (occurrence: GR)
  Receive Date: 20170711
  Receipt Date: 20190103
  Transmission Date: 20190417
  Serious: Yes (Death)
  Sender: FDA-Public Use
  Company Number: GR-PFIZER INC-2017157930

PATIENT
  Age: 72 Year
  Sex: Female

DRUGS (6)
  1. VALACICLOVIR [Suspect]
     Active Substance: VALACYCLOVIR HYDROCHLORIDE
     Indication: PROPHYLAXIS
     Dosage: 500 MG, DAILY
  2. MOXIFLOXACIN. [Suspect]
     Active Substance: MOXIFLOXACIN
     Indication: PROPHYLAXIS
     Dosage: 400 MG, DAILY
  3. VORICONAZOLE. [Suspect]
     Active Substance: VORICONAZOLE
     Indication: PNEUMOCYSTIS JIROVECII PNEUMONIA
     Dosage: 400 MG, 2X/DAY (FIRST DAY)
     Route: 042
  4. VORICONAZOLE. [Suspect]
     Active Substance: VORICONAZOLE
     Indication: BRONCHOPULMONARY ASPERGILLOSIS
     Dosage: 200 MG, 2X/DAY (FIRST DAY 400 MG X2)
     Route: 042
  5. SULFAMETHOXAZOLE W/TRIMETHOPRIM [Suspect]
     Active Substance: SULFAMETHOXAZOLE\TRIMETHOPRIM
     Indication: PNEUMOCYSTIS JIROVECII PNEUMONIA
     Dosage: UNK (400+80 MG) X3
     Route: 042
  6. SULFAMETHOXAZOLE W/TRIMETHOPRIM [Suspect]
     Active Substance: SULFAMETHOXAZOLE\TRIMETHOPRIM
     Indication: BRONCHOPULMONARY ASPERGILLOSIS

REACTIONS (1)
  - Drug ineffective [Fatal]
